FAERS Safety Report 19125800 (Version 1)
Quarter: 2021Q2

REPORT INFORMATION
  Report Type: Spontaneous
  Country: US (occurrence: US)
  Receive Date: 20210412
  Receipt Date: 20210412
  Transmission Date: 20210717
  Serious: No
  Sender: FDA-Public Use
  Company Number: US-INTRA-CELLULAR THERAPIES, INC.-2021ICT00082

PATIENT

DRUGS (4)
  1. UNSPECIFIED ATYPICAL ANTIPSYCHOTICS [Concomitant]
     Active Substance: UNSPECIFIED INGREDIENT
  2. UNSPECIFIED SSRI ANTIDEPRESSANT [Concomitant]
  3. UNSPECIFIED ^ANTI?PROLACTANT MOOD STABILIZER^ [Concomitant]
  4. CAPLYTA [Suspect]
     Active Substance: LUMATEPERONE
     Indication: SCHIZOPHRENIA
     Dosage: UNK

REACTIONS (2)
  - Balance disorder [Unknown]
  - Somnolence [Unknown]
